FAERS Safety Report 21218541 (Version 1)
Quarter: 2022Q3

REPORT INFORMATION
  Report Type: Spontaneous
  Country: US (occurrence: None)
  Receive Date: 20220816
  Receipt Date: 20220816
  Transmission Date: 20221027
  Serious: Yes (Hospitalization)
  Sender: FDA-Public Use
  Company Number: 2022A284504

PATIENT
  Age: 40 Year
  Sex: Female
  Weight: 76.2 kg

DRUGS (1)
  1. EVUSHELD [Suspect]
     Active Substance: CILGAVIMAB\TIXAGEVIMAB
     Indication: COVID-19 prophylaxis
     Route: 030
     Dates: start: 20220610, end: 20220610

REACTIONS (5)
  - Platelet count decreased [Recovering/Resolving]
  - Mouth haemorrhage [Unknown]
  - Contusion [Unknown]
  - Epistaxis [Unknown]
  - Petechiae [Unknown]

NARRATIVE: CASE EVENT DATE: 20220613
